FAERS Safety Report 12580905 (Version 2)
Quarter: 2016Q3

REPORT INFORMATION
  Report Type: Spontaneous
  Country: GB (occurrence: GB)
  Receive Date: 20160721
  Receipt Date: 20160826
  Transmission Date: 20161109
  Serious: Yes (Hospitalization, Other)
  Sender: FDA-Public Use
  Company Number: GB-CONCORDIA PHARMACEUTICALS INC.-GSH201607-003681

PATIENT
  Age: 72 Year
  Sex: Female
  Weight: 69 kg

DRUGS (34)
  1. MELPHALAN [Suspect]
     Active Substance: MELPHALAN
     Indication: PLASMA CELL MYELOMA
     Dosage: DOSAGE FORM: UNSPECIFIED, DAY 1 TO DAY 4
     Route: 048
     Dates: start: 20160202, end: 20160205
  2. ACICLOVIR [Concomitant]
     Active Substance: ACYCLOVIR
     Indication: VIRAL INFECTION
     Route: 048
     Dates: start: 20160215, end: 20160216
  3. CHLORPHENAMINE [Concomitant]
     Active Substance: CHLORPHENIRAMINE MALEATE
     Indication: RASH
     Route: 048
     Dates: start: 20160212, end: 20160212
  4. LITHIUM CARBONATE. [Concomitant]
     Active Substance: LITHIUM CARBONATE
     Indication: BIPOLAR DISORDER
     Route: 048
     Dates: start: 1995
  5. LORAZEPAM. [Concomitant]
     Active Substance: LORAZEPAM
     Indication: BIPOLAR DISORDER
     Route: 048
     Dates: start: 20160225, end: 20160225
  6. PHOSPHATE SANDOZ EFFERVESCENT [Concomitant]
     Indication: SEPSIS
     Route: 048
     Dates: start: 20160216, end: 20160216
  7. TAZOCIN [Concomitant]
     Active Substance: PIPERACILLIN SODIUM\TAZOBACTAM SODIUM
     Indication: SEPSIS
     Dosage: DOSAGE FORM: SOLUTION
     Route: 042
     Dates: start: 20160211, end: 20160211
  8. VANCOMYCIN [Concomitant]
     Active Substance: VANCOMYCIN
     Indication: SEPSIS
     Dosage: DOSAGE FORM: SOLUTION
     Route: 042
     Dates: start: 20160216, end: 20160216
  9. ACICLOVIR [Concomitant]
     Active Substance: ACYCLOVIR
     Indication: VIRAL INFECTION
     Route: 048
     Dates: start: 20160222
  10. CHLORPHENAMINE [Concomitant]
     Active Substance: CHLORPHENIRAMINE MALEATE
     Indication: RASH MACULAR
     Route: 048
     Dates: start: 20160212, end: 20160212
  11. DALTEPARIN [Concomitant]
     Active Substance: DALTEPARIN
     Indication: THROMBOSIS
     Dosage: DOSAGE FORM: SOLUTION
     Route: 058
     Dates: start: 20160221, end: 20160221
  12. MEROPENEM. [Concomitant]
     Active Substance: MEROPENEM
     Indication: SEPSIS
     Dosage: DOSAGE FORM: SOLUTION
     Route: 042
     Dates: start: 20160217, end: 20160217
  13. MEROPENEM. [Concomitant]
     Active Substance: MEROPENEM
     Indication: SEPSIS
     Dosage: DOSAGE FORM: SOLUTION
     Route: 042
     Dates: start: 20160212, end: 20160212
  14. SEPTRIN [Concomitant]
     Active Substance: SULFAMETHOXAZOLE\TRIMETHOPRIM
     Indication: SEPSIS
     Route: 048
     Dates: start: 20160216
  15. SODIUM CHLORIDE. [Concomitant]
     Active Substance: SODIUM CHLORIDE
     Indication: SEPSIS
     Dosage: DOSAGE FORM: SOLUTION
     Route: 042
     Dates: start: 20160211, end: 20160222
  16. ALENDRONIC ACID [Concomitant]
     Active Substance: ALENDRONIC ACID
     Indication: OSTEOPOROSIS
     Route: 048
     Dates: start: 1995, end: 20160213
  17. CITALOPRAM [Concomitant]
     Active Substance: CITALOPRAM HYDROBROMIDE
     Indication: BIPOLAR DISORDER
     Route: 048
     Dates: start: 1995
  18. DALTEPARIN [Concomitant]
     Active Substance: DALTEPARIN
     Indication: THROMBOSIS
     Dosage: DOSAGE FORM: SOLUTION
     Route: 058
     Dates: start: 20160212, end: 20160214
  19. VANCOMYCIN [Concomitant]
     Active Substance: VANCOMYCIN
     Indication: SEPSIS
     Dosage: DOSAGE FORM: SOLUTION
     Route: 042
     Dates: start: 20160217, end: 20160217
  20. PREDNISOLONE. [Suspect]
     Active Substance: PREDNISOLONE
     Indication: PLASMA CELL MYELOMA
     Dosage: DOSAGE FORM: UNSPECIFIED, DAY 1 TO DAY 4
     Route: 048
     Dates: start: 20160202, end: 20160205
  21. GLUCOSE [Concomitant]
     Active Substance: DEXTROSE
     Indication: SEPSIS
     Dosage: DOSAGE FORM: SOLUTION
     Route: 042
     Dates: start: 20160213, end: 20160213
  22. MEROPENEM. [Concomitant]
     Active Substance: MEROPENEM
     Indication: SEPSIS
     Dosage: DOSAGE FORM: SOLUTION
     Route: 042
     Dates: start: 20160213, end: 20160216
  23. TAZOCIN [Concomitant]
     Active Substance: PIPERACILLIN SODIUM\TAZOBACTAM SODIUM
     Indication: SEPSIS
     Dosage: DOSAGE FORM: SOLUTION
     Route: 042
     Dates: start: 20160212, end: 20160212
  24. ACICLOVIR [Concomitant]
     Active Substance: ACYCLOVIR
     Indication: VIRAL INFECTION
     Route: 048
     Dates: start: 20160219, end: 20160219
  25. ALLOPURINOL. [Concomitant]
     Active Substance: ALLOPURINOL
     Indication: TUMOUR LYSIS SYNDROME
     Route: 048
     Dates: start: 20160216, end: 20160222
  26. DALTEPARIN [Concomitant]
     Active Substance: DALTEPARIN
     Indication: THROMBOSIS
     Dosage: DOSAGE FORM: SOLUTION
     Route: 058
     Dates: start: 20160222, end: 20160224
  27. PARACETAMOL [Concomitant]
     Active Substance: ACETAMINOPHEN
     Indication: SEPSIS
     Route: 048
     Dates: start: 20160211
  28. ZANAMIVIR [Concomitant]
     Active Substance: ZANAMIVIR
     Indication: DYSPNOEA
     Dosage: DOSAGE FORM: POWDER
     Route: 055
     Dates: start: 20160216
  29. G-CSF [Concomitant]
     Active Substance: GRANULOCYTE COLONY-STIMULATING FACTOR NOS
     Indication: NEUTROPENIA
     Dosage: DOSAGE FORM: SOLUTION
     Route: 058
     Dates: start: 20160217, end: 20160218
  30. VELCADE [Suspect]
     Active Substance: BORTEZOMIB
     Indication: PLASMA CELL MYELOMA
     Dosage: DOSAGE FORM: LYOPHILIZED POWDER, ON DAYS 1, 4, 8, 11, 22, 29
     Route: 058
     Dates: start: 20160202, end: 20160209
  31. ALLOPURINOL. [Concomitant]
     Active Substance: ALLOPURINOL
     Indication: TUMOUR LYSIS SYNDROME
     Route: 048
     Dates: start: 20160223
  32. ONDANSETRON [Concomitant]
     Active Substance: ONDANSETRON
     Indication: NAUSEA
     Route: 048
     Dates: start: 20160218, end: 20160218
  33. PHOSPHATE SANDOZ EFFERVESCENT [Concomitant]
     Indication: SEPSIS
     Route: 048
     Dates: start: 20160215, end: 20160215
  34. SALBUTAMOL [Concomitant]
     Active Substance: ALBUTEROL
     Indication: DYSPNOEA
     Dosage: DOSAGE FORM: POWDER
     Route: 055
     Dates: start: 20160218, end: 20160218

REACTIONS (8)
  - Confusional state [Unknown]
  - Sepsis [Recovered/Resolved]
  - Rash [Unknown]
  - Rash macular [Unknown]
  - Neutropenia [Unknown]
  - Nausea [Unknown]
  - Dyspnoea [Unknown]
  - Dehydration [Unknown]

NARRATIVE: CASE EVENT DATE: 20160202
